FAERS Safety Report 16795341 (Version 1)
Quarter: 2019Q3

REPORT INFORMATION
  Report Type: Spontaneous
  Country: CN (occurrence: CN)
  Receive Date: 20190911
  Receipt Date: 20190911
  Transmission Date: 20191005
  Serious: Yes (Hospitalization)
  Sender: FDA-Public Use
  Company Number: CN-PFIZER INC-2019387335

PATIENT
  Age: 60 Year
  Sex: Female
  Weight: 65 kg

DRUGS (1)
  1. MEDROL [Suspect]
     Active Substance: METHYLPREDNISOLONE
     Indication: SYSTEMIC LUPUS ERYTHEMATOSUS
     Dosage: 4 MG, 1X/DAY
     Route: 048
     Dates: start: 20190822, end: 20190905

REACTIONS (1)
  - Superinfection [Recovering/Resolving]

NARRATIVE: CASE EVENT DATE: 20190826
